FAERS Safety Report 5615377-9 (Version None)
Quarter: 2008Q1

REPORT INFORMATION
  Report Type: 
  Country: None (occurrence: None)
  Receive Date: 20080206
  Receipt Date: 20080131
  Transmission Date: 20080703
  Serious: Yes (Hospitalization)
  Sender: FDA-Public Use
  Company Number: PHEH2008US01472

PATIENT
  Sex: Female

DRUGS (1)
  1. TEKTURNA [Suspect]
     Route: 048

REACTIONS (2)
  - NEUTROPENIA [None]
  - PANCYTOPENIA [None]
